FAERS Safety Report 23049969 (Version 1)
Quarter: 2023Q4

REPORT INFORMATION
  Report Type: Spontaneous
  Country: US (occurrence: None)
  Receive Date: 20231008
  Receipt Date: 20231008
  Transmission Date: 20240110
  Serious: No
  Sender: FDA-Public Use
  Company Number: None

PATIENT
  Sex: 0

DRUGS (1)
  1. PRAVASTATIN SODIUM [Suspect]
     Active Substance: PRAVASTATIN SODIUM

REACTIONS (3)
  - Product colour issue [None]
  - Product shape issue [None]
  - Product substitution issue [None]

NARRATIVE: CASE EVENT DATE: 20231007
